FAERS Safety Report 18813033 (Version 1)
Quarter: 2021Q1

REPORT INFORMATION
  Report Type: Spontaneous
  Country: US (occurrence: US)
  Receive Date: 20210131
  Receipt Date: 20210131
  Transmission Date: 20210419
  Serious: Yes (Other)
  Sender: FDA-Public Use
  Company Number: US-PURDUE-USA-2020-0178472

PATIENT
  Sex: Female

DRUGS (6)
  1. MORPHINE SULFATE EXTENDED?RELEASE TABLETS (RHODES 74?769, 74?862) [Suspect]
     Active Substance: MORPHINE SULFATE
     Indication: OOPHORECTOMY
     Dosage: UNK, UNK
     Route: 048
     Dates: start: 2016
  2. OXYIR [Suspect]
     Active Substance: OXYCODONE HYDROCHLORIDE
     Indication: PRODUCT USED FOR UNKNOWN INDICATION
     Dosage: UNK, UNK
     Route: 065
  3. TRAMADOL. [Suspect]
     Active Substance: TRAMADOL
     Indication: PRODUCT USED FOR UNKNOWN INDICATION
     Dosage: UNK, UNK
     Route: 065
  4. PERCOCET                           /00446701/ [Suspect]
     Active Substance: ACETAMINOPHEN\OXYCODONE HYDROCHLORIDE\OXYCODONE TEREPHTHALATE
     Indication: OOPHORECTOMY
     Dosage: UNK, UNK
     Route: 065
     Dates: start: 2016
  5. OXYCONTIN [Suspect]
     Active Substance: OXYCODONE HYDROCHLORIDE
     Indication: PRODUCT USED FOR UNKNOWN INDICATION
     Dosage: UNK, UNK
     Route: 048
  6. MORPHINE SULFATE (SIMILAR TO NDA 19?516) [Suspect]
     Active Substance: MORPHINE SULFATE
     Indication: OOPHORECTOMY
     Dosage: UNK, UNK
     Route: 048
     Dates: start: 2016

REACTIONS (8)
  - Migraine [Unknown]
  - Drug abuse [Unknown]
  - Pain [Unknown]
  - Renal disorder [Unknown]
  - Maternal exposure during pregnancy [Unknown]
  - Dental caries [Unknown]
  - Ill-defined disorder [Unknown]
  - Drug dependence [Unknown]
